FAERS Safety Report 5344337-0 (Version None)
Quarter: 2007Q2

REPORT INFORMATION
  Report Type: 
  Country: None (occurrence: None)
  Receive Date: 20070604
  Receipt Date: 20070530
  Transmission Date: 20071010
  Serious: No
  Sender: FDA-Public Use
  Company Number: JP-SHR-JP-2007-018378

PATIENT
  Age: 72 Year
  Sex: Male

DRUGS (8)
  1. MAGNEVIST [Suspect]
     Dosage: 15 ML, 1 DOSE
     Route: 042
     Dates: start: 20070423, end: 20070423
  2. CORTRIL [Concomitant]
     Dosage: 10 MG, 3X/DAY
     Route: 048
  3. THYRADIN [Concomitant]
     Dosage: 25 MG, 1X/DAY
     Route: 048
  4. AMLODIN [Concomitant]
     Dosage: 2.5 MG, 1X/DAY
     Route: 048
  5. BASEN [Concomitant]
     Dosage: .2 MG, 3X/DAY
     Route: 048
  6. ALINAMIN F [Concomitant]
     Dosage: 1 TAB(S), 3X/DAY
     Route: 048
  7. LAC B [Concomitant]
     Dosage: 1 G, 2X/DAY
     Route: 048
  8. LENDORMIN [Concomitant]
     Dosage: .25 MG, 1X/DAY
     Route: 048

REACTIONS (2)
  - RASH PRURITIC [None]
  - SKIN DISCOMFORT [None]
